FAERS Safety Report 25927983 (Version 1)
Quarter: 2025Q4

REPORT INFORMATION
  Report Type: Report from Study
  Country: MX (occurrence: MX)
  Receive Date: 20251016
  Receipt Date: 20251016
  Transmission Date: 20260118
  Serious: Yes (Other)
  Sender: ASTELLAS
  Company Number: MX-ASTELLAS-2025-AER-056309

PATIENT
  Age: 73 Year
  Sex: Male

DRUGS (1)
  1. XTANDI [Suspect]
     Active Substance: ENZALUTAMIDE
     Indication: Hormone-refractory prostate cancer
     Route: 048
     Dates: start: 20241128, end: 20250822

REACTIONS (1)
  - Hypertensive crisis [Not Recovered/Not Resolved]

NARRATIVE: CASE EVENT DATE: 20250822
